FAERS Safety Report 11184179 (Version 1)
Quarter: 2015Q2

REPORT INFORMATION
  Report Type: Spontaneous
  Country: US (occurrence: US)
  Receive Date: 20150612
  Receipt Date: 20150612
  Transmission Date: 20150821
  Serious: No
  Sender: FDA-Public Use
  Company Number: US-PFIZER INC-2015192727

PATIENT
  Age: 66 Year
  Sex: Male
  Weight: 86.6 kg

DRUGS (1)
  1. TORISEL [Suspect]
     Active Substance: TEMSIROLIMUS
     Dosage: 20MG RECONSTITUTED IN 250ML OF NORMAL SALINE, WEEKLY
     Route: 042

REACTIONS (1)
  - Lymphoedema [Unknown]

NARRATIVE: CASE EVENT DATE: 201505
